FAERS Safety Report 6997194-0 (Version None)
Quarter: 2010Q3

REPORT INFORMATION
  Report Type: 
  Country: None (occurrence: None)
  Receive Date: 20100918
  Receipt Date: 20091020
  Transmission Date: 20110219
  Serious: Yes (Life-Threatening, Hospitalization)
  Sender: FDA-Public Use
  Company Number: US-WYE-H11003609

PATIENT
  Sex: Female
  Weight: 59.02 kg

DRUGS (3)
  1. PRISTIQ [Suspect]
     Indication: ANXIETY
     Route: 065
     Dates: start: 20090407, end: 20090821
  2. SYNTHROID [Concomitant]
     Indication: HYPOTHYROIDISM
     Route: 065
     Dates: start: 20090416
  3. CONJUGATED ESTROGENS [Concomitant]
     Indication: MENOPAUSE
     Dosage: 0.625 MG (FREQUENCY UNKNOWN)
     Route: 048

REACTIONS (1)
  - CONVULSION [None]
